FAERS Safety Report 24835977 (Version 2)
Quarter: 2025Q2

REPORT INFORMATION
  Report Type: Spontaneous
  Country: DE (occurrence: DE)
  Receive Date: 20250113
  Receipt Date: 20250404
  Transmission Date: 20250717
  Serious: Yes (Hospitalization)
  Sender: NOVARTIS
  Company Number: DE-DCGMA-24204529

PATIENT
  Age: 68 Year
  Sex: Female
  Weight: 71.3 kg

DRUGS (2)
  1. INCLISIRAN [Suspect]
     Active Substance: INCLISIRAN
     Indication: Hyperlipidaemia
     Route: 058
     Dates: start: 20230421, end: 20240621
  2. INCLISIRAN [Suspect]
     Active Substance: INCLISIRAN
     Indication: Coronary artery disease

REACTIONS (2)
  - Pruritus [Not Recovered/Not Resolved]
  - Urticaria [Not Recovered/Not Resolved]

NARRATIVE: CASE EVENT DATE: 20241211
